FAERS Safety Report 9107067 (Version 1)
Quarter: 2013Q1

REPORT INFORMATION
  Report Type: Spontaneous
  Country: US (occurrence: US)
  Receive Date: 20130221
  Receipt Date: 20130221
  Transmission Date: 20140127
  Serious: No
  Sender: FDA-Public Use
  Company Number: US-009507513-1302USA009203

PATIENT
  Age: 67 Year
  Sex: Male

DRUGS (2)
  1. COSOPT PF [Suspect]
     Indication: GLAUCOMA
     Route: 047
  2. SIMVASTATIN [Concomitant]

REACTIONS (2)
  - Ocular hyperaemia [Unknown]
  - Eye irritation [Unknown]
